FAERS Safety Report 11381059 (Version 1)
Quarter: 2015Q3

REPORT INFORMATION
  Report Type: Spontaneous
  Country: DE (occurrence: DE)
  Receive Date: 20150814
  Receipt Date: 20150814
  Transmission Date: 20151125
  Serious: Yes (Life-Threatening, Hospitalization)
  Sender: FDA-Public Use
  Company Number: DE-SA-2015SA119509

PATIENT
  Age: 70 Year
  Sex: Male

DRUGS (17)
  1. TAVOR [Interacting]
     Active Substance: LORAZEPAM
     Dosage: DOSE: 1 MG IN 500 ML INFUSION
     Route: 042
     Dates: start: 20041026, end: 20041112
  2. REMERGIL [Interacting]
     Active Substance: MIRTAZAPINE
     Dosage: DOSE: 21 MG IN 500 ML INFUSION
     Route: 042
     Dates: start: 20041026, end: 20041111
  3. TAVOR [Interacting]
     Active Substance: LORAZEPAM
     Route: 042
     Dates: start: 20041117, end: 20041119
  4. REMERGIL [Interacting]
     Active Substance: MIRTAZAPINE
     Route: 048
     Dates: start: 20041122
  5. EDRONAX [Suspect]
     Active Substance: REBOXETINE MESYLATE
     Route: 048
     Dates: start: 20040827
  6. DETRUSITOL [Concomitant]
     Active Substance: TOLTERODINE TARTRATE
     Route: 048
  7. LASIX [Interacting]
     Active Substance: FUROSEMIDE
     Route: 048
  8. EDRONAX [Suspect]
     Active Substance: REBOXETINE MESYLATE
     Route: 048
     Dates: start: 20040921, end: 20041024
  9. LEPONEX [Interacting]
     Active Substance: CLOZAPINE
     Route: 048
     Dates: start: 20041029, end: 20041104
  10. LEPONEX [Interacting]
     Active Substance: CLOZAPINE
     Route: 048
     Dates: start: 20041105, end: 20041109
  11. LEPONEX [Interacting]
     Active Substance: CLOZAPINE
     Route: 048
     Dates: start: 20041119
  12. INSULIN [Concomitant]
     Active Substance: INSULIN NOS
  13. DOCITON [Interacting]
     Active Substance: PROPRANOLOL HYDROCHLORIDE
     Route: 048
  14. JONOSTERIL [Concomitant]
     Active Substance: CALCIUM ACETATE\MAGNESIUM ACETATE\POTASSIUM ACETATE\SODIUM ACETATE\SODIUM CHLORIDE
  15. LEPONEX [Interacting]
     Active Substance: CLOZAPINE
     Route: 048
     Dates: start: 20041110, end: 20041118
  16. BENALAPRIL [Interacting]
     Active Substance: ENALAPRIL MALEATE
     Route: 048
  17. REMERGIL [Interacting]
     Active Substance: MIRTAZAPINE
     Route: 042
     Dates: start: 20041117, end: 20041119

REACTIONS (2)
  - Circulatory collapse [Recovered/Resolved]
  - Depressed level of consciousness [Recovered/Resolved]

NARRATIVE: CASE EVENT DATE: 20041119
